FAERS Safety Report 16508608 (Version 1)
Quarter: 2019Q3

REPORT INFORMATION
  Report Type: Spontaneous
  Country: US (occurrence: US)
  Receive Date: 20190702
  Receipt Date: 20190702
  Transmission Date: 20191004
  Serious: No
  Sender: FDA-Public Use
  Company Number: US-ROCHE-2162717

PATIENT
  Age: 62 Year
  Sex: Female

DRUGS (1)
  1. XELODA [Suspect]
     Active Substance: CAPECITABINE
     Indication: BREAST CANCER
     Dosage: Q12 H FOR 2 WEEKS THEN 1 WEEK OFF AND REPEAT
     Route: 048
     Dates: start: 20180613

REACTIONS (3)
  - Onychalgia [Unknown]
  - Skin discolouration [Unknown]
  - Nail discolouration [Unknown]

NARRATIVE: CASE EVENT DATE: 20180630
